FAERS Safety Report 18602847 (Version 1)
Quarter: 2020Q4

REPORT INFORMATION
  Report Type: Report from Study
  Country: FR (occurrence: FR)
  Receive Date: 20201210
  Receipt Date: 20201210
  Transmission Date: 20210114
  Serious: Yes (Hospitalization)
  Sender: FDA-Public Use
  Company Number: FR-TAIHO ONCOLOGY  INC-IM-2020-00943

PATIENT
  Age: 82 Year
  Sex: Male
  Weight: 56 kg

DRUGS (19)
  1. LONSURF [Suspect]
     Active Substance: TIPIRACIL HYDROCHLORIDE\TRIFLURIDINE
     Indication: RECTAL ADENOCARCINOMA
     Dosage: 65 MG (35 MG/M2) BID, ON DAYS 1-5 AND 8-12 OF EACH 28-DAY CYCLE
     Route: 048
     Dates: start: 20190621, end: 20190702
  2. LONSURF [Suspect]
     Active Substance: TIPIRACIL HYDROCHLORIDE\TRIFLURIDINE
     Dosage: 55 MG (30 MG/M2) BID, ON DAYS 1-5 AND 8-12 OF EACH 28-DAY CYCLE
     Route: 048
     Dates: start: 20200312, end: 20200323
  3. BEVACIZUMAB. [Suspect]
     Active Substance: BEVACIZUMAB
     Dosage: 280 MG (5MG/KG), ON DAY 1 AND 15 OF EACH 28-DAY CYCLE
     Route: 042
     Dates: start: 20201015, end: 20201015
  4. PREVISCAN [Concomitant]
     Indication: ATRIAL FIBRILLATION
     Dosage: 20 MG, QD
     Route: 048
     Dates: start: 2015
  5. LONSURF [Suspect]
     Active Substance: TIPIRACIL HYDROCHLORIDE\TRIFLURIDINE
     Dosage: 55 MG (30 MG/M2) BID, ON DAYS 1-5 AND 8-12 OF EACH 28-DAY CYCLE
     Route: 048
     Dates: start: 20200423, end: 20200921
  6. LONSURF [Suspect]
     Active Substance: TIPIRACIL HYDROCHLORIDE\TRIFLURIDINE
     Dosage: 55 MG (30 MG/M2) ) BID, ON DAYS 1-5 AND 8-12 OF EACH 28-DAY CYCLE
     Route: 048
     Dates: start: 20201022, end: 20201026
  7. BEVACIZUMAB. [Suspect]
     Active Substance: BEVACIZUMAB
     Dosage: 355 MG (5MG/KG), ON DAY 1 AND 15 OF EACH 28-DAY CYCLE
     Route: 042
     Dates: start: 20200206, end: 20200616
  8. SECTRAL [Concomitant]
     Active Substance: ACEBUTOLOL HYDROCHLORIDE
     Indication: HYPERTENSION
     Dosage: 200 MG, QD
     Route: 048
     Dates: start: 2010
  9. LONSURF [Suspect]
     Active Substance: TIPIRACIL HYDROCHLORIDE\TRIFLURIDINE
     Dosage: 60 MG (30 MG/M2) BID, ON DAYS 1-5 AND 8-12 OF EACH 28-DAY CYCLE
     Route: 048
     Dates: start: 20190725, end: 20190930
  10. EFFEXOR [Concomitant]
     Active Substance: VENLAFAXINE HYDROCHLORIDE
     Indication: DEPRESSION
     Dosage: 37.5 MG, QD
     Route: 048
     Dates: start: 20191017
  11. LONSURF [Suspect]
     Active Substance: TIPIRACIL HYDROCHLORIDE\TRIFLURIDINE
     Dosage: 60 MG (30 MG/M2) ) BID, ON DAYS 1-5 AND 8-12 OF EACH 28-DAY CYCLE
     Route: 048
     Dates: start: 20191024, end: 20191104
  12. LONSURF [Suspect]
     Active Substance: TIPIRACIL HYDROCHLORIDE\TRIFLURIDINE
     Dosage: 60 MG (30 MG/M2) ) BID, ON DAYS 1-5 AND 8-12 OF EACH 28-DAY CYCLE
     Route: 048
     Dates: start: 20191128, end: 20200217
  13. BEVACIZUMAB. [Suspect]
     Active Substance: BEVACIZUMAB
     Dosage: 360 MG (5MG/KG), ON DAY 1 AND 15 OF EACH 28-DAY CYCLE
     Route: 042
     Dates: start: 20200109, end: 20200109
  14. CRESTOR [Concomitant]
     Active Substance: ROSUVASTATIN CALCIUM
     Indication: CARDIOVASCULAR EVENT PROPHYLAXIS
     Dosage: 5 MG, QD
     Route: 048
     Dates: start: 2015
  15. KARDEGIC [Concomitant]
     Active Substance: ASPIRIN DL-LYSINE
     Indication: PROPHYLAXIS
     Dosage: 75 MG, QD
     Route: 048
     Dates: start: 2013
  16. BEVACIZUMAB. [Suspect]
     Active Substance: BEVACIZUMAB
     Indication: RECTAL ADENOCARCINOMA
     Dosage: 410 MG (5MG/KG), ON DAY 1 AND 15 OF EACH 28-DAY CYCLE
     Route: 042
     Dates: start: 20190621, end: 20201127
  17. BEVACIZUMAB. [Suspect]
     Active Substance: BEVACIZUMAB
     Dosage: 295 MG (5MG/KG), ON DAY 1 AND 15 OF EACH 28-DAY CYCLE
     Route: 042
     Dates: start: 20200716, end: 20200813
  18. AMLOR [Concomitant]
     Active Substance: AMLODIPINE BESYLATE
     Indication: HYPERTENSION
     Dosage: 75 MG, QD
     Route: 048
     Dates: start: 2010
  19. EUPANTOL [Concomitant]
     Active Substance: PANTOPRAZOLE SODIUM
     Indication: PROPHYLAXIS AGAINST GASTROINTESTINAL ULCER
     Dosage: 200 MG, QD
     Route: 048
     Dates: start: 2015

REACTIONS (1)
  - Gastrointestinal haemorrhage [Not Recovered/Not Resolved]

NARRATIVE: CASE EVENT DATE: 20201125
